FAERS Safety Report 17662731 (Version 1)
Quarter: 2020Q2

REPORT INFORMATION
  Report Type: Spontaneous
  Country: US (occurrence: US)
  Receive Date: 20200413
  Receipt Date: 20200413
  Transmission Date: 20200713
  Serious: Yes (Death, Other)
  Sender: FDA-Public Use
  Company Number: US-PERRIGO-20US005134

PATIENT
  Age: 63 Year
  Sex: Male

DRUGS (2)
  1. PREVACID 24 HR [Suspect]
     Active Substance: LANSOPRAZOLE
     Indication: PRODUCT USED FOR UNKNOWN INDICATION
     Dosage: UNKNOWN, UNKNOWN
     Route: 048
  2. PRILOSEC [Suspect]
     Active Substance: OMEPRAZOLE MAGNESIUM
     Indication: GASTROOESOPHAGEAL REFLUX DISEASE
     Dosage: 40 MG, BID
     Route: 048
     Dates: start: 2009, end: 2011

REACTIONS (22)
  - Pollakiuria [Unknown]
  - Polyuria [Unknown]
  - Chromaturia [Unknown]
  - Urine flow decreased [Unknown]
  - Urinary incontinence [Unknown]
  - Death [Fatal]
  - Renal impairment [Unknown]
  - Diabetic nephropathy [Unknown]
  - Urinary straining [Unknown]
  - Chronic kidney disease [Unknown]
  - Urinary retention [Unknown]
  - Proteinuria [Unknown]
  - Urinary hesitation [Unknown]
  - Stress urinary incontinence [Unknown]
  - Dysuria [Unknown]
  - Nocturia [Unknown]
  - Haematuria [Unknown]
  - Urine output decreased [Unknown]
  - Urine odour abnormal [Unknown]
  - Renal failure [Unknown]
  - Renal cyst [Unknown]
  - Renal mass [Unknown]

NARRATIVE: CASE EVENT DATE: 2009
